FAERS Safety Report 22940574 (Version 3)
Quarter: 2023Q4

REPORT INFORMATION
  Report Type: Report from Study
  Country: US (occurrence: US)
  Receive Date: 20230913
  Receipt Date: 20231113
  Transmission Date: 20240110
  Serious: Yes (Hospitalization, Other)
  Sender: FDA-Public Use
  Company Number: US-GILEAD-2023-0643469

PATIENT
  Age: 52 Year
  Sex: Female

DRUGS (3)
  1. AMBRISENTAN [Suspect]
     Active Substance: AMBRISENTAN
     Indication: Pulmonary hypertension
     Dosage: 5 MG, QD
     Route: 065
     Dates: start: 20211027
  2. REMODULIN [Concomitant]
     Active Substance: TREPROSTINIL
  3. ADEMPAS [Concomitant]
     Active Substance: RIOCIGUAT

REACTIONS (5)
  - Syncope [Unknown]
  - Fall [Unknown]
  - Peripheral swelling [Unknown]
  - Device dislocation [Unknown]
  - Catheter site pruritus [Unknown]

NARRATIVE: CASE EVENT DATE: 20230101
